FAERS Safety Report 5714474-7 (Version None)
Quarter: 2008Q2

REPORT INFORMATION
  Report Type: 
  Country: None (occurrence: None)
  Receive Date: 20080423
  Receipt Date: 20080410
  Transmission Date: 20081010
  Serious: Yes (Other)
  Sender: FDA-Public Use
  Company Number: PHHY2008GT05363

PATIENT
  Age: 82 Year
  Sex: Female

DRUGS (4)
  1. DYNACIRC [Suspect]
     Dosage: 5 MG PER DAY
     Route: 048
     Dates: start: 20080201
  2. DIOVAN HCT [Suspect]
     Indication: HYPERTENSION
     Dosage: 320/12.5 MG PER DAY
     Route: 048
     Dates: start: 20070101
  3. INSULIN [Concomitant]
     Dosage: 30 U EVERY 24 HOURS
     Route: 058
  4. ACETYLSALICYLIC ACID SRT [Concomitant]
     Dosage: 81 MG PER DAY
     Route: 048

REACTIONS (5)
  - CATARACT [None]
  - CATARACT OPERATION [None]
  - DILATATION VENTRICULAR [None]
  - ELECTROCARDIOGRAM ABNORMAL [None]
  - LEFT ATRIAL DILATATION [None]
